FAERS Safety Report 5766125-3 (Version None)
Quarter: 2008Q2

REPORT INFORMATION
  Report Type: 
  Country: None (occurrence: None)
  Receive Date: 20080611
  Receipt Date: 20080603
  Transmission Date: 20081010
  Serious: Yes (Other)
  Sender: FDA-Public Use
  Company Number: JP-PFIZER INC-2008048071

PATIENT
  Age: 83 Year

DRUGS (3)
  1. DETRUSITOL LA [Suspect]
     Route: 048
  2. NORVASC [Concomitant]
     Route: 048
  3. AMARYL [Concomitant]
     Route: 048

REACTIONS (2)
  - BLOOD PRESSURE INCREASED [None]
  - OEDEMA PERIPHERAL [None]
